FAERS Safety Report 4788111-2 (Version None)
Quarter: 2005Q4

REPORT INFORMATION
  Report Type: 
  Country: None (occurrence: None)
  Receive Date: 20051003
  Receipt Date: 20050921
  Transmission Date: 20060501
  Serious: Yes (Hospitalization)
  Sender: FDA-Public Use
  Company Number: 2005-09-1274

PATIENT
  Age: 11 Year
  Sex: Female

DRUGS (1)
  1. AERIUS (DESLORATADINE) [Suspect]
     Indication: ASTHMA
     Dosage: ORAL
     Route: 048
     Dates: start: 20050901, end: 20050902

REACTIONS (2)
  - DIPLOPIA [None]
  - VERTIGO [None]
